FAERS Safety Report 7688643-3 (Version None)
Quarter: 2011Q3

REPORT INFORMATION
  Report Type: 
  Country: None (occurrence: None)
  Receive Date: 20110817
  Receipt Date: 20110811
  Transmission Date: 20111222
  Serious: Yes (Other)
  Sender: FDA-Public Use
  Company Number: GB-GLAXOSMITHKLINE-B0738761A

PATIENT
  Age: 39 Year
  Sex: Male
  Weight: 80 kg

DRUGS (6)
  1. SULPIRIDE [Concomitant]
     Indication: SCHIZOPHRENIA
     Dosage: 1600MG PER DAY
     Route: 048
  2. PROCYCLIDINE HYDROCHLORIDE 2MG TAB [Concomitant]
     Indication: ADVERSE DRUG REACTION
     Dosage: 10MG PER DAY
     Route: 048
  3. NICOTINE [Suspect]
     Indication: NICOTINE DEPENDENCE
     Route: 062
     Dates: start: 20110601, end: 20110601
  4. NICOTINE [Suspect]
     Route: 055
     Dates: start: 20110601, end: 20110601
  5. CARBAMAZEPINE [Concomitant]
     Indication: MOOD SWINGS
     Dosage: 800MG PER DAY
     Route: 048
  6. LANSOPRAZOLE [Concomitant]
     Indication: DYSPEPSIA
     Dosage: 15MG PER DAY
     Route: 048

REACTIONS (3)
  - ANXIETY [None]
  - PSYCHOTIC DISORDER [None]
  - STRESS [None]
